FAERS Safety Report 5128534-5 (Version None)
Quarter: 2006Q4

REPORT INFORMATION
  Report Type: 
  Country: None (occurrence: None)
  Receive Date: 20061011
  Receipt Date: 20060925
  Transmission Date: 20070319
  Serious: Yes (Other)
  Sender: FDA-Public Use
  Company Number: US-2006-028117

PATIENT
  Age: 40 Year
  Sex: Male

DRUGS (1)
  1. BETASERON [Suspect]
     Indication: RELAPSING-REMITTING MULTIPLE SCLEROSIS
     Dosage: 9.6 MIU, EVERY 2D, SUBCUTANEOUS
     Route: 058
     Dates: start: 20060726

REACTIONS (8)
  - CONDITION AGGRAVATED [None]
  - DROOLING [None]
  - FACE INJURY [None]
  - GRAND MAL CONVULSION [None]
  - JOINT DISLOCATION [None]
  - LOSS OF CONSCIOUSNESS [None]
  - MULTIPLE SCLEROSIS [None]
  - MUSCLE SPASMS [None]
